FAERS Safety Report 14658377 (Version 5)
Quarter: 2020Q3

REPORT INFORMATION
  Report Type: Spontaneous
  Country: AU (occurrence: AU)
  Receive Date: 20180320
  Receipt Date: 20200826
  Transmission Date: 20201102
  Serious: Yes (Life-Threatening, Other)
  Sender: FDA-Public Use
  Company Number: AU-ROCHE-2086103

PATIENT
  Age: 29 Year
  Sex: Female
  Weight: 80 kg

DRUGS (5)
  1. AZATHIOPRINE. [Suspect]
     Active Substance: AZATHIOPRINE
     Indication: TAKAYASU^S ARTERITIS
     Route: 065
  2. MYCOPHENOLATE MOFETIL. [Suspect]
     Active Substance: MYCOPHENOLATE MOFETIL
     Indication: TAKAYASU^S ARTERITIS
     Route: 065
  3. PREDNISOLONE. [Concomitant]
     Active Substance: PREDNISOLONE
  4. INFLIXIMAB [Concomitant]
     Active Substance: INFLIXIMAB
  5. METHYLPREDNISOLONE. [Concomitant]
     Active Substance: METHYLPREDNISOLONE
     Dosage: 1000MG X3

REACTIONS (16)
  - Fatigue [Unknown]
  - Pain in extremity [Unknown]
  - Obesity [Unknown]
  - Vasculitis [Unknown]
  - Aortic dissection [Not Recovered/Not Resolved]
  - Osteonecrosis [Unknown]
  - Maternal exposure during pregnancy [Unknown]
  - Off label use [Unknown]
  - Posterior reversible encephalopathy syndrome [Unknown]
  - Takayasu^s arteritis [Unknown]
  - Malaise [Unknown]
  - C-reactive protein increased [Unknown]
  - Neck pain [Unknown]
  - Arthralgia [Unknown]
  - Bone density decreased [Unknown]
  - Intentional product use issue [Unknown]

NARRATIVE: CASE EVENT DATE: 201910
